FAERS Safety Report 20090837 (Version 1)
Quarter: 2021Q4

REPORT INFORMATION
  Report Type: Other
  Country: CA (occurrence: CA)
  Receive Date: 20211119
  Receipt Date: 20211119
  Transmission Date: 20220303
  Serious: Yes (Hospitalization, Other)
  Sender: FDA-Public Use
  Company Number: CA-APOTEX-2021AP045482

PATIENT
  Age: 21 Month
  Sex: Male
  Weight: 11 kg

DRUGS (4)
  1. ASPIRIN [Suspect]
     Active Substance: ASPIRIN
     Indication: Accidental exposure to product by child
     Dosage: 80 MILLIGRAM, SINGLE
     Route: 048
  2. AMLODIPINE [Suspect]
     Active Substance: AMLODIPINE BESYLATE
     Indication: Accidental exposure to product by child
     Dosage: 5 MILLIGRAM, SINGLE
     Route: 048
  3. BISOPROLOL [Suspect]
     Active Substance: BISOPROLOL
     Indication: Accidental exposure to product by child
     Dosage: 10 MILLIGRAM, SINGLE
     Route: 048
  4. ROSUVASTATIN [Suspect]
     Active Substance: ROSUVASTATIN
     Indication: Accidental exposure to product by child
     Dosage: 10 MILLIGRAM, SINGLE
     Route: 048

REACTIONS (1)
  - Accidental poisoning [Recovered/Resolved]
